FAERS Safety Report 5599584-X (Version None)
Quarter: 2008Q1

REPORT INFORMATION
  Report Type: 
  Country: None (occurrence: None)
  Receive Date: 20080118
  Receipt Date: 20080103
  Transmission Date: 20080703
  Serious: Yes (Hospitalization)
  Sender: FDA-Public Use
  Company Number: FACT0800003

PATIENT
  Age: 40 Year
  Sex: Female
  Weight: 77.1 kg

DRUGS (1)
  1. FACTIVE [Suspect]
     Indication: PNEUMONIA
     Dosage: 320 MG, QD, ORAL
     Route: 048

REACTIONS (9)
  - ALANINE AMINOTRANSFERASE INCREASED [None]
  - ATELECTASIS [None]
  - BLOOD ALKALINE PHOSPHATASE INCREASED [None]
  - CHILLS [None]
  - ERYTHEMA MULTIFORME [None]
  - NAUSEA [None]
  - PAIN [None]
  - PULMONARY CONGESTION [None]
  - PYREXIA [None]
